FAERS Safety Report 16451159 (Version 1)
Quarter: 2019Q2

REPORT INFORMATION
  Report Type: Spontaneous
  Country: US (occurrence: US)
  Receive Date: 20190509
  Receipt Date: 20190509
  Transmission Date: 20190711
  Serious: No
  Sender: FDA-Public Use
  Company Number: None

PATIENT
  Age: 13 Year
  Sex: Male

DRUGS (1)
  1. NORDITROPIN [Suspect]
     Active Substance: SOMATROPIN
     Indication: HYPOPITUITARISM
     Dosage: ?          OTHER DOSE:1.2MG;?
     Route: 058
     Dates: start: 20171025

REACTIONS (2)
  - Headache [None]
  - Migraine [None]

NARRATIVE: CASE EVENT DATE: 20190430
